FAERS Safety Report 21301346 (Version 1)
Quarter: 2022Q3

REPORT INFORMATION
  Report Type: Report from Study
  Country: IT (occurrence: IT)
  Receive Date: 20220907
  Receipt Date: 20220907
  Transmission Date: 20221027
  Serious: Yes (Life-Threatening, Hospitalization, Disabling, Other)
  Sender: FDA-Public Use
  Company Number: IT-BRISTOL-MYERS SQUIBB COMPANY-BMS-2022-038599

PATIENT
  Age: 89 Year
  Sex: Female
  Weight: 60 kg

DRUGS (10)
  1. ELIQUIS [Suspect]
     Active Substance: APIXABAN
     Indication: Cerebrovascular accident prophylaxis
     Dosage: 5 MG TABLET X 2 AT HOURS 8 AND 20
     Route: 048
     Dates: start: 20210830
  2. PANTOPRAZOLE [Concomitant]
     Active Substance: PANTOPRAZOLE
     Indication: Gastrointestinal disorder prophylaxis
     Dosage: 20 MILLIGRAM, Q8H
     Route: 048
  3. MEDROL [Concomitant]
     Active Substance: METHYLPREDNISOLONE
     Indication: Myalgia
     Route: 048
     Dates: end: 202204
  4. CARDURA [Concomitant]
     Active Substance: DOXAZOSIN MESYLATE
     Indication: Hypertension
     Dosage: 2 MILLIGRAM, QD (IN EVENING)
     Route: 048
  5. OLMESARTAN MEDOXOMIL [Concomitant]
     Active Substance: OLMESARTAN MEDOXOMIL
     Indication: Hypertension
     Dosage: 20 MILLIGRAM, QD (IN MORNING)
     Route: 048
  6. LASIX [Concomitant]
     Active Substance: FUROSEMIDE
     Indication: Oedema
     Route: 048
     Dates: start: 20220204
  7. LASIX [Concomitant]
     Active Substance: FUROSEMIDE
     Indication: Dyspnoea
  8. BISOPROLOL [Concomitant]
     Active Substance: BISOPROLOL
     Indication: Atrial fibrillation
     Route: 048
     Dates: start: 20211027
  9. CHOLECALCIFEROL [Concomitant]
     Active Substance: CHOLECALCIFEROL
     Indication: Vitamin D deficiency
     Route: 048
  10. ALLOPURINOL [Concomitant]
     Active Substance: ALLOPURINOL
     Indication: Hyperuricaemia
     Route: 048
     Dates: end: 202204

REACTIONS (8)
  - Gastrointestinal haemorrhage [Unknown]
  - Strangulated umbilical hernia [Recovered/Resolved]
  - Abnormal loss of weight [Unknown]
  - Dyspnoea exertional [Unknown]
  - Fatigue [Unknown]
  - Heart rate decreased [Unknown]
  - Microcytic anaemia [Not Recovered/Not Resolved]
  - Oedema [Unknown]

NARRATIVE: CASE EVENT DATE: 20211027
